FAERS Safety Report 14247687 (Version 2)
Quarter: 2017Q4

REPORT INFORMATION
  Report Type: Spontaneous
  Country: US (occurrence: US)
  Receive Date: 20171204
  Receipt Date: 20171204
  Transmission Date: 20180321
  Serious: No
  Sender: FDA-Public Use
  Company Number: US-ABBVIE-16P-163-1797404-00

PATIENT
  Sex: Female

DRUGS (1)
  1. OMNICEF [Suspect]
     Active Substance: CEFDINIR
     Indication: PRODUCT USED FOR UNKNOWN INDICATION
     Route: 065

REACTIONS (2)
  - Hypersensitivity [Unknown]
  - Dermatitis allergic [Unknown]
